FAERS Safety Report 8292330 (Version 2)
Quarter: 2019Q3

REPORT INFORMATION
  Report Type: Spontaneous
  Country: US (occurrence: US)
  Receive Date: 20111215
  Receipt Date: 20190911
  Transmission Date: 20191005
  Serious: Yes (Hospitalization, Other)
  Sender: FDA-Public Use
  Company Number: US-JNJFOC-20111203010

PATIENT
  Sex: Female
  Weight: 44.95 kg

DRUGS (18)
  1. TOPAMAX [Suspect]
     Active Substance: TOPIRAMATE
     Route: 048
  2. TOPAMAX [Suspect]
     Active Substance: TOPIRAMATE
     Dosage: 100MG+50MG
     Route: 048
  3. TOPAMAX [Suspect]
     Active Substance: TOPIRAMATE
     Route: 048
     Dates: start: 2002
  4. DURAGESIC [Suspect]
     Active Substance: FENTANYL
     Route: 062
  5. VALIUM [Concomitant]
     Active Substance: DIAZEPAM
     Indication: PAIN
     Route: 065
  6. DURAGESIC [Suspect]
     Active Substance: FENTANYL
     Dosage: 100UG/HR+25UG/HR
     Route: 062
     Dates: end: 2005
  7. OXYCONTIN [Concomitant]
     Active Substance: OXYCODONE HYDROCHLORIDE
     Indication: PAIN
     Route: 065
  8. DURAGESIC [Suspect]
     Active Substance: FENTANYL
     Route: 062
  9. DURAGESIC [Suspect]
     Active Substance: FENTANYL
     Route: 062
  10. TOPAMAX [Suspect]
     Active Substance: TOPIRAMATE
     Dosage: 50MG+25MG
     Route: 048
  11. TOPIRAMATE. [Suspect]
     Active Substance: TOPIRAMATE
     Indication: COMPLEX REGIONAL PAIN SYNDROME
     Route: 048
     Dates: start: 2002
  12. TOPAMAX [Suspect]
     Active Substance: TOPIRAMATE
     Route: 048
  13. FENTANYL. [Concomitant]
     Active Substance: FENTANYL
     Indication: PAIN
     Route: 061
  14. PARACETAMOL [Concomitant]
     Active Substance: ACETAMINOPHEN
     Indication: PAIN
     Route: 065
  15. TOPAMAX [Suspect]
     Active Substance: TOPIRAMATE
     Indication: COMPLEX REGIONAL PAIN SYNDROME
     Route: 048
     Dates: start: 2002
  16. DURAGESIC [Suspect]
     Active Substance: FENTANYL
     Indication: COMPLEX REGIONAL PAIN SYNDROME
     Route: 062
     Dates: start: 2003
  17. MELOXICAM. [Concomitant]
     Active Substance: MELOXICAM
     Indication: PERIPHERAL SWELLING
     Route: 065
  18. VITAMIN B12 [Concomitant]
     Active Substance: CYANOCOBALAMIN
     Route: 048

REACTIONS (22)
  - Bile duct stone [Not Recovered/Not Resolved]
  - Weight decreased [Recovered/Resolved]
  - Product complaint [Unknown]
  - Hysterectomy [Recovered/Resolved]
  - Spinal stenosis [Not Recovered/Not Resolved]
  - Blister [Recovered/Resolved]
  - Off label use [Unknown]
  - Product administered at inappropriate site [Recovered/Resolved]
  - Scar [Recovered/Resolved]
  - Drug tolerance [Unknown]
  - Weight decreased [Recovered/Resolved]
  - Biliary colic [Recovered/Resolved]
  - Stress [Not Recovered/Not Resolved]
  - Suicide attempt [Unknown]
  - Hallucination [Recovered/Resolved]
  - Insomnia [Not Recovered/Not Resolved]
  - Product use in unapproved indication [Unknown]
  - Intervertebral disc degeneration [Not Recovered/Not Resolved]
  - Bipolar disorder [Recovering/Resolving]
  - Complex regional pain syndrome [Not Recovered/Not Resolved]
  - Vomiting [Recovered/Resolved]
  - Skin burning sensation [Recovered/Resolved]

NARRATIVE: CASE EVENT DATE: 2002
